FAERS Safety Report 8268558-2 (Version None)
Quarter: 2012Q2

REPORT INFORMATION
  Report Type: 
  Country: None (occurrence: None)
  Receive Date: 20120409
  Receipt Date: 20120329
  Transmission Date: 20120825
  Serious: Yes (Hospitalization, Other)
  Sender: FDA-Public Use
  Company Number: US-ASTRAZENECA-2010SE21479

PATIENT
  Age: 68 Year
  Sex: Female
  Weight: 86.2 kg

DRUGS (32)
  1. SEROQUEL [Suspect]
     Route: 048
     Dates: start: 20100601, end: 20100101
  2. SEROQUEL [Suspect]
     Route: 048
  3. CITALOPRAM HYDROBROMIDE [Concomitant]
     Indication: DEPRESSION
  4. BLOOD PRESSURE MED [Concomitant]
     Indication: BLOOD PRESSURE ABNORMAL
  5. NEXIUM [Suspect]
     Route: 048
  6. SEROQUEL [Suspect]
     Indication: NERVOUSNESS
     Route: 048
     Dates: start: 20090101, end: 20100601
  7. ATIVAN [Concomitant]
     Indication: ANXIETY
     Route: 048
     Dates: start: 19970101
  8. SEROQUEL [Suspect]
     Route: 048
  9. SEROQUEL [Suspect]
     Route: 048
  10. ATIVAN [Concomitant]
     Indication: SLEEP DISORDER
     Route: 048
     Dates: start: 19970101
  11. SEROQUEL [Suspect]
     Route: 048
     Dates: start: 20100601, end: 20100101
  12. SEROQUEL [Suspect]
     Route: 048
  13. SEROQUEL [Suspect]
     Route: 048
  14. HYDROCODONE BITARTRATE [Concomitant]
     Indication: PAIN
  15. SEROQUEL [Suspect]
     Route: 048
  16. CLONAZEPAM [Concomitant]
     Indication: ANXIETY
  17. SEROQUEL [Suspect]
     Indication: ANTIDEPRESSANT THERAPY
     Route: 048
     Dates: start: 20090101, end: 20100601
  18. SEROQUEL [Suspect]
     Indication: ANXIETY
     Route: 048
     Dates: start: 20090101, end: 20100601
  19. SEROQUEL [Suspect]
     Route: 048
  20. ATIVAN [Concomitant]
     Route: 048
  21. ATIVAN [Concomitant]
     Route: 048
  22. ROBAXIN [Concomitant]
     Indication: MUSCLE SPASMS
  23. METHOCARBAMOL [Concomitant]
     Indication: PAIN
  24. NEXIUM [Suspect]
     Indication: DYSPEPSIA
     Route: 048
  25. NEXIUM [Suspect]
     Indication: GASTROOESOPHAGEAL REFLUX DISEASE
     Route: 048
  26. NEXIUM [Suspect]
     Route: 048
  27. SEROQUEL [Suspect]
     Indication: SLEEP DISORDER
     Route: 048
     Dates: start: 20090101, end: 20100601
  28. SEROQUEL [Suspect]
     Route: 048
     Dates: start: 20100601, end: 20100101
  29. SEROQUEL [Suspect]
     Route: 048
     Dates: start: 20100601, end: 20100101
  30. SEROQUEL [Suspect]
     Route: 048
  31. ATIVAN [Concomitant]
     Route: 048
  32. ATIVAN [Concomitant]
     Route: 048

REACTIONS (28)
  - DYSPHONIA [None]
  - PAIN [None]
  - AGITATION [None]
  - DEPRESSION [None]
  - INTENTIONAL DRUG MISUSE [None]
  - DRUG DOSE OMISSION [None]
  - DRUG INEFFECTIVE [None]
  - OFF LABEL USE [None]
  - POOR QUALITY SLEEP [None]
  - OSTEOPOROSIS [None]
  - ABNORMAL DREAMS [None]
  - INSOMNIA [None]
  - MIDDLE INSOMNIA [None]
  - CEREBRAL HAEMORRHAGE [None]
  - CHEST DISCOMFORT [None]
  - ARTHRITIS [None]
  - SOMNOLENCE [None]
  - FEELING ABNORMAL [None]
  - FEELING JITTERY [None]
  - RENAL FAILURE ACUTE [None]
  - INITIAL INSOMNIA [None]
  - TREATMENT NONCOMPLIANCE [None]
  - IRREGULAR SLEEP PHASE [None]
  - TREMOR [None]
  - DIZZINESS POSTURAL [None]
  - NERVOUSNESS [None]
  - REGURGITATION [None]
  - FATIGUE [None]
